FAERS Safety Report 13568252 (Version 1)
Quarter: 2017Q2

REPORT INFORMATION
  Report Type: Spontaneous
  Country: US (occurrence: US)
  Receive Date: 20170522
  Receipt Date: 20170522
  Transmission Date: 20170830
  Serious: No
  Sender: FDA-Public Use
  Company Number: US-GLAXOSMITHKLINE-US2017GSK074126

PATIENT
  Sex: Female

DRUGS (4)
  1. NICODERM CQ [Suspect]
     Active Substance: NICOTINE
     Indication: SMOKING CESSATION THERAPY
     Dosage: 21 MG, QD (1 PATCH)
     Route: 061
     Dates: start: 20170505
  2. NICOTINE TRANSDERMAL PATCH [Suspect]
     Active Substance: NICOTINE
     Dosage: 14 MG, QD (1 PATCH)
     Route: 061
     Dates: start: 2012
  3. NICOTINE TRANSDERMAL PATCH [Suspect]
     Active Substance: NICOTINE
     Dosage: 21 MG, QD (1 PATCH)
     Route: 061
     Dates: start: 20170501
  4. NICOTINE TRANSDERMAL PATCH [Suspect]
     Active Substance: NICOTINE
     Indication: SMOKING CESSATION THERAPY
     Dosage: 21 MG, QD (1 PATCH)
     Route: 061
     Dates: start: 2012

REACTIONS (5)
  - Application site pruritus [Unknown]
  - Application site rash [Unknown]
  - Application site pain [Unknown]
  - Incorrect drug administration duration [Unknown]
  - Expired product administered [Unknown]

NARRATIVE: CASE EVENT DATE: 20170505
